FAERS Safety Report 8053074-3 (Version None)
Quarter: 2012Q1

REPORT INFORMATION
  Report Type: 
  Country: None (occurrence: None)
  Receive Date: 20120112
  Receipt Date: 20120106
  Transmission Date: 20120608
  Serious: Yes (Hospitalization)
  Sender: FDA-Public Use
  Company Number: 125927-3

PATIENT
  Age: 44 Year
  Sex: Female
  Weight: 93 kg

DRUGS (1)
  1. LEUCOVORIN CALCIUM [Suspect]
     Indication: GASTRIC CANCER
     Dosage: 400MG/M^2 IV
     Route: 042
     Dates: start: 20110804, end: 20111006

REACTIONS (7)
  - GASTRIC HAEMORRHAGE [None]
  - BACTERIAL TEST POSITIVE [None]
  - HAEMOGLOBIN DECREASED [None]
  - NAUSEA [None]
  - VOMITING [None]
  - HYPOPHAGIA [None]
  - NEUTROPENIA [None]
